FAERS Safety Report 7302880-9 (Version None)
Quarter: 2011Q1

REPORT INFORMATION
  Report Type: 
  Country: None (occurrence: None)
  Receive Date: 20110218
  Receipt Date: 20110215
  Transmission Date: 20110831
  Serious: Yes (Hospitalization)
  Sender: FDA-Public Use
  Company Number: GR-ABBOTT-11P-066-0705603-00

PATIENT
  Age: 63 Year
  Sex: Male

DRUGS (3)
  1. DILATREND [Concomitant]
     Indication: PRODUCT USED FOR UNKNOWN INDICATION
  2. HYTRIN [Suspect]
     Indication: PRODUCT USED FOR UNKNOWN INDICATION
     Dosage: UNK (5MG)
     Route: 048
     Dates: start: 20090101, end: 20110101
  3. T4 [Concomitant]
     Indication: PRODUCT USED FOR UNKNOWN INDICATION

REACTIONS (1)
  - EYELID OEDEMA [None]
